FAERS Safety Report 8613268 (Version 2)
Quarter: 2013Q1

REPORT INFORMATION
  Report Type: Spontaneous
  Country: FR (occurrence: FR)
  Receive Date: 20120613
  Receipt Date: 20130315
  Transmission Date: 20140127
  Serious: Yes (Hospitalization, Other)
  Sender: FDA-Public Use
  Company Number: FR-ACTELION-A-CH2012-66840

PATIENT
  Age: 56 Year
  Sex: Male
  Weight: 56 kg

DRUGS (7)
  1. TRACLEER [Suspect]
     Indication: PULMONARY ARTERIAL HYPERTENSION
     Dosage: 125 MG, BID
     Route: 048
     Dates: start: 2009, end: 20120602
  2. SUBUTEX [Concomitant]
     Dosage: 10 MG, OD
     Dates: start: 2002
  3. LEXOMIL [Concomitant]
     Dosage: 6 MG, BID
     Dates: start: 20120530
  4. DUPHALAC [Concomitant]
     Dosage: 10 G, TID
     Dates: start: 20120530
  5. OXYNORM [Concomitant]
     Dosage: 10 MG, UNK
     Dates: start: 20120523
  6. OXYCONTIN [Concomitant]
     Dosage: 40 MG, BID
     Dates: start: 20120523
  7. TRANSIPEG [Concomitant]
     Dosage: 5.9 G, BID
     Dates: start: 20120528

REACTIONS (10)
  - Abdominal pain [Unknown]
  - Biliary drainage [Unknown]
  - Jaundice [Unknown]
  - Faeces discoloured [Unknown]
  - Weight decreased [Unknown]
  - Pancreatitis [Unknown]
  - Pancreatic carcinoma [Unknown]
  - Liver function test abnormal [Recovered/Resolved]
  - Aspartate aminotransferase increased [Recovered/Resolved]
  - Alanine aminotransferase increased [Recovered/Resolved]
